FAERS Safety Report 15691736 (Version 1)
Quarter: 2018Q4

REPORT INFORMATION
  Report Type: Report from Study
  Country: GB (occurrence: GB)
  Receive Date: 20181205
  Receipt Date: 20181205
  Transmission Date: 20190205
  Serious: Yes (Death)
  Sender: FDA-Public Use
  Company Number: GB-MYLANLABS-2018M1088909

PATIENT

DRUGS (4)
  1. BUSULFAN. [Suspect]
     Active Substance: BUSULFAN
     Indication: CERVIX CARCINOMA
  2. MELPHALAN. [Suspect]
     Active Substance: MELPHALAN
     Indication: CERVIX CARCINOMA
  3. BUSULFAN. [Suspect]
     Active Substance: BUSULFAN
     Indication: EWING^S SARCOMA
     Dosage: 16MG/KG OVER FOUR DAYS
     Route: 065
  4. MELPHALAN. [Suspect]
     Active Substance: MELPHALAN
     Indication: EWING^S SARCOMA
     Dosage: 140 MG/M2 ON DAY FIVE.
     Route: 065

REACTIONS (1)
  - Myelopathy [Fatal]
